FAERS Safety Report 7398912-2 (Version None)
Quarter: 2011Q2

REPORT INFORMATION
  Report Type: 
  Country: None (occurrence: None)
  Receive Date: 20110407
  Receipt Date: 20110331
  Transmission Date: 20111010
  Serious: Yes (Hospitalization)
  Sender: FDA-Public Use
  Company Number: RO-ABBOTT-11P-135-0715441-00

PATIENT
  Sex: Male
  Weight: 72 kg

DRUGS (8)
  1. FUROSEMID [Concomitant]
     Indication: HYPERTENSION
     Route: 048
     Dates: start: 20100511
  2. ZEMPLAR [Suspect]
     Indication: HYPERPARATHYROIDISM SECONDARY
     Dosage: 1 MCG DAILY
     Route: 048
     Dates: start: 20101227, end: 20110318
  3. ZEMPLAR [Suspect]
     Indication: RENAL FAILURE CHRONIC
     Dosage: 2 MCG DAILY
     Route: 048
     Dates: start: 20101227, end: 20110318
  4. ASPENTER [Concomitant]
     Indication: MYOCARDIAL ISCHAEMIA
     Route: 048
     Dates: start: 20100511, end: 20110329
  5. COAPROVEL [Concomitant]
     Indication: HYPERTENSION
     Dosage: 150/12.5MG DAILY
     Route: 048
     Dates: start: 20100511
  6. DILZEM [Concomitant]
     Indication: HYPERTENSION
     Route: 048
     Dates: start: 20100511
  7. DARBEPOETINUM ALFA [Concomitant]
     Indication: ANAEMIA
     Route: 058
     Dates: start: 20101127
  8. BICALUTAMIDE [Concomitant]
     Indication: PROSTATE CANCER
     Dosage: 50MG DAILY
     Route: 048
     Dates: start: 20100615

REACTIONS (2)
  - HYPERCALCAEMIA [None]
  - HAEMATURIA [None]
